FAERS Safety Report 15157157 (Version 1)
Quarter: 2018Q3

REPORT INFORMATION
  Report Type: Report from Study
  Country: None (occurrence: US)
  Receive Date: 20180718
  Receipt Date: 20180718
  Transmission Date: 20181010
  Serious: Yes (Other)
  Sender: FDA-Public Use
  Company Number: US-ABBVIE-18K-163-2308146-00

PATIENT
  Age: 18 Year
  Sex: Female

DRUGS (4)
  1. HUMIRA [Suspect]
     Active Substance: ADALIMUMAB
     Dosage: DAY 29
     Route: 058
     Dates: start: 20180419, end: 2018
  2. HUMIRA [Suspect]
     Active Substance: ADALIMUMAB
     Indication: CROHN^S DISEASE
     Dosage: DAY 1
     Route: 058
     Dates: start: 20180322, end: 20180322
  3. HUMIRA [Suspect]
     Active Substance: ADALIMUMAB
     Dosage: DAY 15
     Route: 058
     Dates: start: 20180405, end: 20180405
  4. HUMIRA [Suspect]
     Active Substance: ADALIMUMAB
     Dosage: DELAYED DOSE
     Route: 058
     Dates: start: 2018

REACTIONS (15)
  - Pain in extremity [Recovered/Resolved]
  - Weight fluctuation [Unknown]
  - Stress [Unknown]
  - Diarrhoea [Recovering/Resolving]
  - Haematochezia [Unknown]
  - Abdominal pain [Recovering/Resolving]
  - Malaise [Recovering/Resolving]
  - Intentional product misuse [Unknown]
  - Vomiting [Recovering/Resolving]
  - Loss of consciousness [Recovered/Resolved]
  - Decreased appetite [Not Recovered/Not Resolved]
  - Wrong technique in product usage process [Unknown]
  - Weight decreased [Recovering/Resolving]
  - Nausea [Recovering/Resolving]
  - Abdominal pain upper [Unknown]

NARRATIVE: CASE EVENT DATE: 2018
